FAERS Safety Report 15733965 (Version 1)
Quarter: 2018Q4

REPORT INFORMATION
  Report Type: Spontaneous
  Country: US (occurrence: US)
  Receive Date: 20181218
  Receipt Date: 20181218
  Transmission Date: 20190205
  Serious: No
  Sender: FDA-Public Use
  Company Number: US-PFIZER INC-2018516254

PATIENT
  Sex: Male

DRUGS (1)
  1. LIPITOR [Suspect]
     Active Substance: ATORVASTATIN CALCIUM
     Indication: CARDIAC FAILURE CHRONIC
     Dosage: UNK

REACTIONS (10)
  - Fatigue [Unknown]
  - Product dose omission [Unknown]
  - Micturition urgency [Unknown]
  - Exercise tolerance decreased [Unknown]
  - Intentional product misuse [Unknown]
  - Dyspnoea [Unknown]
  - Heart rate irregular [Unknown]
  - Disturbance in attention [Unknown]
  - Asthenia [Unknown]
  - Waist circumference increased [Unknown]
